FAERS Safety Report 6668940-0 (Version None)
Quarter: 2010Q2

REPORT INFORMATION
  Report Type: 
  Country: None (occurrence: None)
  Receive Date: 20100401
  Receipt Date: 20100317
  Transmission Date: 20101027
  Serious: Yes (Hospitalization, Other)
  Sender: FDA-Public Use
  Company Number: AUR-APL-2009-00348

PATIENT
  Age: 62 Year
  Sex: Female
  Weight: 73 kg

DRUGS (3)
  1. MIRTAZAPINE [Suspect]
     Indication: SLEEP DISORDER THERAPY
     Dosage: 15MG, QHS
  2. SERTRALINE HCL [Suspect]
     Indication: DEPRESSION
     Dosage: 100MG, DAILY
  3. LAMOTRIGINE [Suspect]
     Indication: DEPRESSION
     Dosage: 25 MG, DAILY

REACTIONS (3)
  - INFLUENZA LIKE ILLNESS [None]
  - STEVENS-JOHNSON SYNDROME [None]
  - STOMATITIS [None]
